FAERS Safety Report 4319264-8 (Version None)
Quarter: 2004Q1

REPORT INFORMATION
  Report Type: 
  Country: None (occurrence: None)
  Receive Date: 20040318
  Receipt Date: 20040318
  Transmission Date: 20041129
  Serious: Yes (Death)
  Sender: FDA-Public Use
  Company Number: None

PATIENT
  Age: 31 Year
  Sex: Male
  Weight: 68.4932 kg

DRUGS (1)
  1. XIGRIS [Suspect]
     Indication: SEPSIS
     Dosage: 1.6 MG/JHR IV INFUSION INTRAVENOUS
     Route: 042
     Dates: start: 20040203, end: 20040205

REACTIONS (2)
  - INCISION SITE HAEMORRHAGE [None]
  - PNEUMOTHORAX [None]
